FAERS Safety Report 4431245-2 (Version None)
Quarter: 2004Q3

REPORT INFORMATION
  Report Type: 
  Country: None (occurrence: None)
  Receive Date: 20040824
  Receipt Date: 20040812
  Transmission Date: 20050211
  Serious: Yes (Hospitalization)
  Sender: FDA-Public Use
  Company Number: US-JNJFOC-20040805004

PATIENT
  Sex: Male

DRUGS (3)
  1. GALANTAMINE [Suspect]
     Route: 049
  2. GALANTAMINE [Suspect]
     Route: 049
  3. GALANTAMINE [Suspect]
     Route: 049

REACTIONS (3)
  - METABOLIC ACIDOSIS [None]
  - RESPIRATORY FAILURE [None]
  - STATUS EPILEPTICUS [None]
